FAERS Safety Report 10926710 (Version 1)
Quarter: 2015Q1

REPORT INFORMATION
  Report Type: Spontaneous
  Country: CH (occurrence: CH)
  Receive Date: 20150318
  Receipt Date: 20150318
  Transmission Date: 20150721
  Serious: Yes (Hospitalization)
  Sender: FDA-Public Use
  Company Number: CH-BAYER-2015-036316

PATIENT
  Age: 80 Year
  Sex: Female
  Weight: 60 kg

DRUGS (9)
  1. CALCIUM PLUS [ASCORBIC ACID,CALCIUM LACTATE GLUCONATE] [Concomitant]
     Dosage: UNK
     Route: 048
     Dates: end: 20150205
  2. ONBREZ [Concomitant]
     Active Substance: INDACATEROL
     Dosage: UNK
     Dates: end: 20150205
  3. SERESTA [Concomitant]
     Active Substance: OXAZEPAM
     Dosage: 15 MG, QD
     Route: 048
     Dates: end: 20150205
  4. VOLTAREN [DICLOFENAC DIETHYLAMINE] [Suspect]
     Active Substance: DICLOFENAC DIETHYLAMINE
     Indication: ARTHRALGIA
     Dosage: UNK
     Route: 048
     Dates: end: 20150205
  5. DAFALGAN [Concomitant]
     Active Substance: ACETAMINOPHEN
     Dosage: 1 G, UNK
     Route: 048
     Dates: end: 20150205
  6. VOLTAREN [DICLOFENAC DIETHYLAMINE] [Concomitant]
     Dosage: UNK
     Route: 061
     Dates: end: 20150205
  7. LISTRIL [Concomitant]
     Active Substance: LISINOPRIL
     Dosage: UNK
     Route: 048
     Dates: end: 20150205
  8. ASPIRIN CARDIO [Suspect]
     Active Substance: ASPIRIN
     Dosage: 100 MG, QD
     Route: 048
     Dates: end: 20150205
  9. TOREM [Concomitant]
     Active Substance: TORSEMIDE
     Dosage: 5 MG, QD
     Route: 048

REACTIONS (7)
  - Haematemesis [Recovered/Resolved]
  - Respiratory failure [Recovering/Resolving]
  - Melaena [Recovering/Resolving]
  - Duodenal ulcer haemorrhage [Recovered/Resolved]
  - Haemorrhagic anaemia [Recovering/Resolving]
  - Haemodynamic instability [Recovered/Resolved]
  - Acute kidney injury [Recovered/Resolved]

NARRATIVE: CASE EVENT DATE: 20150205
